FAERS Safety Report 7071398-3 (Version None)
Quarter: 2010Q4

REPORT INFORMATION
  Report Type: 
  Country: None (occurrence: None)
  Receive Date: 20101029
  Receipt Date: 20100407
  Transmission Date: 20110411
  Serious: No
  Sender: FDA-Public Use
  Company Number: A0753290A

PATIENT
  Age: 74 Year
  Sex: Female

DRUGS (7)
  1. ADVAIR DISKUS 100/50 [Suspect]
     Indication: CHRONIC OBSTRUCTIVE PULMONARY DISEASE
     Dosage: 1PUFF VARIABLE DOSE
     Route: 055
     Dates: start: 20070101
  2. SPIRIVA [Concomitant]
  3. ALBUTEROL [Concomitant]
  4. LOVASTATIN [Concomitant]
  5. VITAMINS [Concomitant]
  6. CALCIUM [Concomitant]
  7. VITAMIN B-12 [Concomitant]

REACTIONS (5)
  - ALOPECIA [None]
  - HAIR GROWTH ABNORMAL [None]
  - NERVOUSNESS [None]
  - TACHYCARDIA [None]
  - TREMOR [None]
